FAERS Safety Report 24767222 (Version 1)
Quarter: 2024Q4

REPORT INFORMATION
  Report Type: Spontaneous
  Country: US (occurrence: None)
  Receive Date: 20241220
  Receipt Date: 20241220
  Transmission Date: 20250114
  Serious: Yes (Other)
  Sender: Public
  Company Number: None

PATIENT
  Age: 73 Year
  Sex: Male
  Weight: 123.75 kg

DRUGS (18)
  1. CABOMETYX [Suspect]
     Active Substance: CABOZANTINIB S-MALATE
     Indication: Hepatocellular carcinoma
     Dosage: 60 MG DAILY ORAL ?
     Route: 048
     Dates: start: 20241106
  2. INSULIN LISPRO [Concomitant]
     Active Substance: INSULIN LISPRO
  3. CLONIDINE [Concomitant]
     Active Substance: CLONIDINE
  4. ALBUTEROL SUL HFA [Concomitant]
  5. LOSARTAN POTASSIUM [Concomitant]
     Active Substance: LOSARTAN POTASSIUM
  6. NIFEDIPINE [Concomitant]
     Active Substance: NIFEDIPINE
  7. GABAPENTIN [Concomitant]
     Active Substance: GABAPENTIN
  8. VITAMIN D3 CAP 1.25MG [Concomitant]
  9. VITAM IN K 100 TAB [Concomitant]
  10. PRAVASTATIN [Concomitant]
     Active Substance: PRAVASTATIN
  11. ALLOPURINOL [Concomitant]
     Active Substance: ALLOPURINOL
  12. VITAMIN B-12 100MG [Concomitant]
  13. HYDROXYCHLOROQUINE [Concomitant]
     Active Substance: HYDROXYCHLOROQUINE
  14. LEVOTHYROXINE [Concomitant]
     Active Substance: LEVOTHYROXINE
  15. METHOTREXATE (METHOTREXATE SODIUM) [Concomitant]
     Active Substance: METHOTREXATE SODIUM
  16. ASPIRIN [Concomitant]
     Active Substance: ASPIRIN
  17. PANTOPRAZOLE SODIUM [Concomitant]
     Active Substance: PANTOPRAZOLE SODIUM
  18. METFORMIN [Concomitant]
     Active Substance: METFORMIN HYDROCHLORIDE

REACTIONS (6)
  - Palmar-plantar erythrodysaesthesia syndrome [None]
  - Tenderness [None]
  - Skin exfoliation [None]
  - Ageusia [None]
  - Aphonia [None]
  - Stomatitis [None]

NARRATIVE: CASE EVENT DATE: 20241220
